FAERS Safety Report 7418592-7 (Version None)
Quarter: 2011Q1

REPORT INFORMATION
  Report Type: 
  Country: None (occurrence: None)
  Receive Date: 20110302
  Receipt Date: 20110106
  Transmission Date: 20110831
  Serious: No
  Sender: FDA-Public Use
  Company Number: 020165

PATIENT
  Sex: Male

DRUGS (1)
  1. CIMZIA [Suspect]
     Indication: CROHN'S DISEASE
     Dosage: SUBCUTANEOUS, 40 MG 1X/MONTH SUBCUTANEOUS
     Route: 058
     Dates: start: 20081009

REACTIONS (5)
  - CHILLS [None]
  - FEELING ABNORMAL [None]
  - BLOOD PRESSURE INCREASED [None]
  - PYREXIA [None]
  - FREQUENT BOWEL MOVEMENTS [None]
